FAERS Safety Report 24457294 (Version 2)
Quarter: 2024Q4

REPORT INFORMATION
  Report Type: Report from Study
  Country: PH (occurrence: PH)
  Receive Date: 20241018
  Receipt Date: 20241108
  Transmission Date: 20250114
  Serious: Yes (Life-Threatening, Hospitalization, Other)
  Sender: EMD SERONO INC
  Company Number: PH-Merck Healthcare KGaA-2024054197

PATIENT
  Age: 9 Year
  Sex: Female

DRUGS (1)
  1. SAIZEN [Suspect]
     Active Substance: SOMATROPIN
     Indication: Product used for unknown indication
     Dosage: 1.20 MG X 7 DAYS/WEEK
     Route: 058

REACTIONS (25)
  - Partial seizures [Unknown]
  - Blood magnesium decreased [Unknown]
  - Blood potassium decreased [Unknown]
  - Blood calcium decreased [Unknown]
  - Hypoparathyroidism [Unknown]
  - Pneumonia [Unknown]
  - Mastoiditis [Unknown]
  - Atelectasis [Unknown]
  - Diarrhoea [Unknown]
  - Joint swelling [Unknown]
  - Blood pressure systolic increased [Unknown]
  - Sinus disorder [Unknown]
  - Electrocardiogram T wave peaked [Unknown]
  - Skin abrasion [Unknown]
  - Erythema [Unknown]
  - Rash pruritic [Unknown]
  - Peripheral swelling [Unknown]
  - Haemoglobin decreased [Unknown]
  - Haematocrit decreased [Unknown]
  - Monocyte count decreased [Unknown]
  - Platelet count increased [Unknown]
  - Mean cell haemoglobin decreased [Unknown]
  - Red cell distribution width increased [Unknown]
  - Arthralgia [Unknown]
  - Headache [Unknown]
